FAERS Safety Report 7303413-3 (Version None)
Quarter: 2011Q1

REPORT INFORMATION
  Report Type: 
  Country: None (occurrence: None)
  Receive Date: 20110221
  Receipt Date: 20110215
  Transmission Date: 20110831
  Serious: Yes (Life-Threatening, Hospitalization)
  Sender: FDA-Public Use
  Company Number: CA-BAYER-2011-013150

PATIENT
  Age: 37 Year
  Sex: Female
  Weight: 66 kg

DRUGS (1)
  1. YASMIN 21 [Suspect]
     Indication: CONTRACEPTION
     Dosage: UNK

REACTIONS (2)
  - PULMONARY EMBOLISM [None]
  - CHEST PAIN [None]
